FAERS Safety Report 15426575 (Version 1)
Quarter: 2018Q3

REPORT INFORMATION
  Report Type: Spontaneous
  Country: US (occurrence: US)
  Receive Date: 20180925
  Receipt Date: 20180925
  Transmission Date: 20181010
  Serious: No
  Sender: FDA-Public Use
  Company Number: US-INDIVIOR LIMITED-INDV-105918-2017

PATIENT
  Sex: Female

DRUGS (2)
  1. OPIOIDS [Suspect]
     Active Substance: UNSPECIFIED INGREDIENT
     Indication: PAIN
     Dosage: UNK
     Route: 065
     Dates: start: 2017
  2. SUBOXONE [Suspect]
     Active Substance: BUPRENORPHINE HYDROCHLORIDE\NALOXONE HYDROCHLORIDE
     Indication: DRUG DEPENDENCE
     Dosage: 4 MG, QD
     Route: 060
     Dates: start: 201701, end: 201702

REACTIONS (3)
  - Skin scar contracture [Unknown]
  - Pain [Unknown]
  - Drug abuse [Unknown]

NARRATIVE: CASE EVENT DATE: 2017
